FAERS Safety Report 13167098 (Version 1)
Quarter: 2017Q1

REPORT INFORMATION
  Report Type: Report from Study
  Country: MX (occurrence: MX)
  Receive Date: 20170131
  Receipt Date: 20170131
  Transmission Date: 20170428
  Serious: Yes (Death, Other)
  Sender: FDA-Public Use
  Company Number: MX-BRISTOL-MYERS SQUIBB COMPANY-BMS-2017-006436

PATIENT
  Age: 73 Year
  Sex: Male
  Weight: 65 kg

DRUGS (1)
  1. DASATINIB [Suspect]
     Active Substance: DASATINIB
     Indication: CHRONIC MYELOID LEUKAEMIA
     Dosage: 50 MG, BID
     Route: 048

REACTIONS (3)
  - Pain [Unknown]
  - Fatigue [Unknown]
  - Death [Fatal]

NARRATIVE: CASE EVENT DATE: 201701
